FAERS Safety Report 12582839 (Version 3)
Quarter: 2016Q3

REPORT INFORMATION
  Report Type: Report from Study
  Country: CA (occurrence: CA)
  Receive Date: 20160722
  Receipt Date: 20160905
  Transmission Date: 20161109
  Serious: Yes (Life-Threatening, Hospitalization)
  Sender: FDA-Public Use
  Company Number: CA-IPSEN BIOPHARMACEUTICALS, INC.-2016-06219

PATIENT
  Age: 81 Year
  Sex: Female
  Weight: 45.35 kg

DRUGS (1)
  1. SOMATULINE AUTOGEL [Suspect]
     Active Substance: LANREOTIDE ACETATE
     Indication: NEUROENDOCRINE TUMOUR
     Dosage: 120 MILIGRAM
     Route: 065
     Dates: start: 20160425, end: 2016

REACTIONS (10)
  - Asthenia [Unknown]
  - Nausea [Unknown]
  - Decreased appetite [Unknown]
  - Dysphagia [Unknown]
  - Sputum discoloured [Unknown]
  - Oedema peripheral [Unknown]
  - Haematochezia [Unknown]
  - Cough [Unknown]
  - Fatigue [Unknown]
  - Joint stiffness [Unknown]

NARRATIVE: CASE EVENT DATE: 20160621
